FAERS Safety Report 5195998-0 (Version None)
Quarter: 2006Q4

REPORT INFORMATION
  Report Type: 
  Country: None (occurrence: None)
  Receive Date: 20061227
  Receipt Date: 20061227
  Transmission Date: 20070319
  Serious: Yes (Other)
  Sender: FDA-Public Use
  Company Number: None

PATIENT
  Sex: Female
  Weight: 57.6068 kg

DRUGS (1)
  1. BONIVA [Suspect]
     Indication: BONE DISORDER
     Dates: start: 20060523, end: 20060905

REACTIONS (2)
  - ANKLE FRACTURE [None]
  - FLUID RETENTION [None]
